FAERS Safety Report 17179815 (Version 1)
Quarter: 2019Q4

REPORT INFORMATION
  Report Type: Spontaneous
  Country: US (occurrence: US)
  Receive Date: 20191220
  Receipt Date: 20191220
  Transmission Date: 20200122
  Serious: Yes (Death, Other)
  Sender: FDA-Public Use
  Company Number: US-BRISTOL-MYERS SQUIBB COMPANY-BMS-2019-121762

PATIENT
  Age: 72 Year
  Sex: Female

DRUGS (2)
  1. YERVOY [Suspect]
     Active Substance: IPILIMUMAB
     Indication: COLON CANCER
     Dosage: 73 MILLIGRAM, Q3WK
     Route: 042
     Dates: start: 20191119, end: 20191119
  2. OPDIVO [Suspect]
     Active Substance: NIVOLUMAB
     Indication: COLON CANCER
     Dosage: 220 MILLIGRAM, Q3WK
     Route: 042
     Dates: start: 20191119, end: 20191119

REACTIONS (1)
  - Death [Fatal]

NARRATIVE: CASE EVENT DATE: 20191128
